FAERS Safety Report 5242790-4 (Version None)
Quarter: 2007Q1

REPORT INFORMATION
  Report Type: 
  Country: None (occurrence: None)
  Receive Date: 20070214
  Receipt Date: 20070130
  Transmission Date: 20070707
  Serious: Yes (Hospitalization)
  Sender: FDA-Public Use
  Company Number: CERZ-11507

PATIENT
  Age: 6 Year
  Sex: Female
  Weight: 13 kg

DRUGS (12)
  1. CEREZYME [Suspect]
     Indication: GAUCHER'S DISEASE
     Dosage: 800 UNITS Q2WKS IV
     Route: 042
     Dates: start: 20010208
  2. ZONISAMIDE [Concomitant]
  3. VALPROATE SODIUM [Concomitant]
  4. UNKNOWN DRUG [Concomitant]
  5. PROCATEROL HCL [Concomitant]
  6. CARBOCISTEINE [Concomitant]
  7. AMBROXOL HYDROCHLORIDE [Concomitant]
  8. BETHANECHOL CHLORIDE [Concomitant]
  9. TRIHEXYPHENIDYL HYDROCHLORIDE [Concomitant]
  10. FUROSEMIDE [Concomitant]
  11. SPIRONOLACTONE [Concomitant]
  12. ETHYL LOFLAZEPATE [Concomitant]

REACTIONS (4)
  - INFECTION [None]
  - INTESTINAL HAEMORRHAGE [None]
  - PLATELET COUNT DECREASED [None]
  - PNEUMONIA [None]
